FAERS Safety Report 14501554 (Version 1)
Quarter: 2018Q1

REPORT INFORMATION
  Report Type: Spontaneous
  Country: US (occurrence: US)
  Receive Date: 20180207
  Receipt Date: 20180207
  Transmission Date: 20180509
  Serious: No
  Sender: FDA-Public Use
  Company Number: US-AMGEN-USASP2017176215

PATIENT
  Age: 54 Year
  Sex: Female
  Weight: 46.26 kg

DRUGS (1)
  1. NEULASTA [Suspect]
     Active Substance: PEGFILGRASTIM
     Indication: PRODUCT USED FOR UNKNOWN INDICATION
     Dosage: UNK UNK, PER CHEMO REGIM
     Route: 065
     Dates: start: 20171116

REACTIONS (4)
  - Feeling abnormal [Unknown]
  - Tenderness [Not Recovered/Not Resolved]
  - Bone pain [Recovering/Resolving]
  - Gait disturbance [Not Recovered/Not Resolved]

NARRATIVE: CASE EVENT DATE: 20171117
